FAERS Safety Report 18089157 (Version 1)
Quarter: 2020Q3

REPORT INFORMATION
  Report Type: Spontaneous
  Country: CA (occurrence: CA)
  Receive Date: 20200729
  Receipt Date: 20200729
  Transmission Date: 20201103
  Serious: Yes (Other)
  Sender: FDA-Public Use
  Company Number: CA-TEVA-2020-CA-1807040

PATIENT
  Age: 51 Year
  Sex: Female

DRUGS (4)
  1. GOLD [Suspect]
     Active Substance: GOLD
     Indication: RHEUMATOID ARTHRITIS
     Route: 065
  2. METHOTREXATE. [Suspect]
     Active Substance: METHOTREXATE
     Indication: RHEUMATOID ARTHRITIS
     Route: 065
  3. HYDROXYCHLOROQUINE SULFATE. [Suspect]
     Active Substance: HYDROXYCHLOROQUINE SULFATE
     Indication: RHEUMATOID ARTHRITIS
     Route: 065
  4. PREDNISONE. [Concomitant]
     Active Substance: PREDNISONE
     Route: 065

REACTIONS (9)
  - Rash [Unknown]
  - Pneumonia [Unknown]
  - Headache [Unknown]
  - Gastrointestinal disorder [Unknown]
  - Hepatic enzyme abnormal [Unknown]
  - Drug ineffective [Unknown]
  - Weight increased [Unknown]
  - Abdominal discomfort [Unknown]
  - Neurological symptom [Unknown]
